FAERS Safety Report 7979819-6 (Version None)
Quarter: 2011Q4

REPORT INFORMATION
  Report Type: 
  Country: None (occurrence: None)
  Receive Date: 20111214
  Receipt Date: 20111208
  Transmission Date: 20120403
  Serious: Yes (Hospitalization)
  Sender: FDA-Public Use
  Company Number: JP-ELI_LILLY_AND_COMPANY-JP201112002084

PATIENT
  Age: 52 Year
  Sex: Male

DRUGS (2)
  1. BOSENTAN [Concomitant]
     Dosage: UNK
  2. ADCIRCA [Suspect]
     Dosage: UNK
     Route: 048
     Dates: start: 20110501, end: 20110601

REACTIONS (1)
  - CARDIAC FAILURE [None]
